FAERS Safety Report 10581181 (Version 1)
Quarter: 2014Q4

REPORT INFORMATION
  Report Type: Spontaneous
  Country: US (occurrence: None)
  Receive Date: 20141112
  Receipt Date: 20141112
  Transmission Date: 20150529
  Serious: Yes (Hospitalization)
  Sender: FDA-Public Use
  Company Number: None

PATIENT
  Age: 59 Year
  Sex: Female

DRUGS (2)
  1. SOVALDI [Suspect]
     Active Substance: SOFOSBUVIR
     Indication: HEPATITIS C
     Route: 048
  2. OLYSIO [Concomitant]
     Active Substance: SIMEPREVIR

REACTIONS (3)
  - Heart rate irregular [None]
  - Sepsis [None]
  - Vomiting [None]

NARRATIVE: CASE EVENT DATE: 20141111
